FAERS Safety Report 6651106-8 (Version None)
Quarter: 2010Q1

REPORT INFORMATION
  Report Type: 
  Country: None (occurrence: None)
  Receive Date: 20100325
  Receipt Date: 20100222
  Transmission Date: 20100710
  Serious: No
  Sender: FDA-Public Use
  Company Number: US-BAYER-201012580BCC

PATIENT
  Age: 60 Year
  Sex: Female

DRUGS (2)
  1. ALEVE (CAPLET) [Suspect]
     Indication: DRUG USE FOR UNKNOWN INDICATION
     Route: 065
  2. RESTASIS [Concomitant]
     Indication: DRY EYE
     Dosage: TOTAL DAILY DOSE: 2 GTT
     Route: 047

REACTIONS (1)
  - ABDOMINAL DISCOMFORT [None]
